FAERS Safety Report 6765461-1 (Version None)
Quarter: 2010Q2

REPORT INFORMATION
  Report Type: 
  Country: None (occurrence: None)
  Receive Date: 20100611
  Receipt Date: 20100602
  Transmission Date: 20101027
  Serious: Yes (Hospitalization)
  Sender: FDA-Public Use
  Company Number: CA-PFIZER INC-2010070247

PATIENT
  Age: 65 Year
  Sex: Male
  Weight: 117 kg

DRUGS (16)
  1. LIPITOR [Suspect]
     Dosage: 10 MG, 1X/DAY
     Route: 048
  2. COENZYME Q10 [Suspect]
     Dosage: 0.6 MG, AS NEEDED
     Route: 048
  3. ALTACE [Concomitant]
     Dosage: 10 MG, 1X/DAY
     Route: 048
  4. AMIODARONE [Concomitant]
     Dosage: 200 MG, 1X/DAY
     Route: 048
  5. AVANDIA [Concomitant]
     Dosage: 4 MG, 1X/DAY
     Route: 048
  6. COENZYME Q10 [Concomitant]
     Dosage: UNK
  7. COREG [Concomitant]
     Dosage: 12.5 MG, 2X/DAY
     Route: 048
  8. FUROSEMIDE [Concomitant]
     Dosage: 40 MG, 2X/DAY
     Route: 048
  9. GLUCONORM [Concomitant]
     Dosage: 2 MG, 3X/DAY
     Route: 048
  10. IRON [Concomitant]
     Dosage: UNK
  11. LOMOTIL [Concomitant]
     Dosage: 2.5 MG, 3X/DAY
  12. MULTI-VITAMINS [Concomitant]
     Dosage: UNK
  13. SERTRALINE [Concomitant]
     Dosage: 50 MG, 1X/DAY
     Route: 048
  14. VITAMIN E [Concomitant]
     Dosage: UNK
  15. WARFARIN [Concomitant]
     Dosage: UNK, ONCE DAILY
     Route: 048
  16. ZAROXOLYN [Concomitant]
     Dosage: 2.5 MG, 1X/DAY
     Route: 048

REACTIONS (12)
  - ALANINE AMINOTRANSFERASE INCREASED [None]
  - ASPARTATE AMINOTRANSFERASE INCREASED [None]
  - BLOOD CREATINE PHOSPHOKINASE INCREASED [None]
  - BLOOD CREATININE INCREASED [None]
  - BLOOD UREA INCREASED [None]
  - BLOOD URIC ACID INCREASED [None]
  - COUGH [None]
  - DIARRHOEA [None]
  - DYSPNOEA [None]
  - HEPATIC ENZYME INCREASED [None]
  - MUSCULAR WEAKNESS [None]
  - RED BLOOD CELL SEDIMENTATION RATE INCREASED [None]
